FAERS Safety Report 16960382 (Version 3)
Quarter: 2020Q2

REPORT INFORMATION
  Report Type: Spontaneous
  Country: PT (occurrence: PT)
  Receive Date: 20191025
  Receipt Date: 20200413
  Transmission Date: 20200713
  Serious: Yes (Hospitalization, Other)
  Sender: FDA-Public Use
  Company Number: PT-ACCORD-158762

PATIENT
  Age: 85 Year
  Sex: Female

DRUGS (4)
  1. RAMIPRIL. [Suspect]
     Active Substance: RAMIPRIL
     Indication: PRODUCT USED FOR UNKNOWN INDICATION
     Dosage: STRENGTH: 5 MG
     Route: 065
  2. VILDAGLIPTINE AND METFORMIN [Suspect]
     Active Substance: METFORMIN\VILDAGLIPTIN
     Indication: PRODUCT USED FOR UNKNOWN INDICATION
     Dosage: STRENGTH : 50 / 1000MG
     Route: 065
  3. AMLODIPINE/LISINOPRIL [Suspect]
     Active Substance: AMLODIPINE BESYLATE\LISINOPRIL
     Indication: PRODUCT USED FOR UNKNOWN INDICATION
     Dosage: STRENGTH : 20 / 5MG
     Route: 065
  4. BISOPROLOL [Suspect]
     Active Substance: BISOPROLOL
     Indication: PRODUCT USED FOR UNKNOWN INDICATION
     Dosage: STRENGTH: 2.5 MG
     Route: 065

REACTIONS (9)
  - Chest pain [Unknown]
  - Hyperkalaemia [Recovered/Resolved]
  - Metabolic acidosis [Not Recovered/Not Resolved]
  - Frustration tolerance decreased [Not Recovered/Not Resolved]
  - Bradycardia [Unknown]
  - Renal tubular acidosis [Unknown]
  - Chronic kidney disease [Unknown]
  - Myalgia [Unknown]
  - Troponin I increased [Unknown]
